FAERS Safety Report 8958396 (Version 1)
Quarter: 2012Q4

REPORT INFORMATION
  Report Type: 
  Country: ES (occurrence: ES)
  Receive Date: 20121210
  Receipt Date: 20121210
  Transmission Date: 20130627
  Serious: Yes (Other)
  Sender: FDA-Public Use
  Company Number: ES-GLAXOSMITHKLINE-B0849935A

PATIENT
  Age: 74 Year
  Sex: Male

DRUGS (2)
  1. FLUSONAL [Suspect]
     Indication: EMPHYSEMA
     Dosage: 100MCG Twice per day
     Route: 055
     Dates: start: 2010, end: 201210
  2. PLUSVENT [Suspect]
     Indication: THROMBOANGIITIS OBLITERANS
     Route: 055
     Dates: start: 2010, end: 201210

REACTIONS (1)
  - Oral candidiasis [Unknown]
